FAERS Safety Report 4416958-0 (Version None)
Quarter: 2004Q3

REPORT INFORMATION
  Report Type: 
  Country: None (occurrence: None)
  Receive Date: 20040806
  Receipt Date: 20030828
  Transmission Date: 20050211
  Serious: No
  Sender: FDA-Public Use
  Company Number: US-GLAXOSMITHKLINE-A0428086A

PATIENT
  Sex: Male

DRUGS (1)
  1. STELAZINE [Suspect]
     Indication: DEPRESSION
     Route: 048

REACTIONS (1)
  - TARDIVE DYSKINESIA [None]
